FAERS Safety Report 6518865-6 (Version None)
Quarter: 2009Q4

REPORT INFORMATION
  Report Type: 
  Country: None (occurrence: None)
  Receive Date: 20091228
  Receipt Date: 20091223
  Transmission Date: 20100525
  Serious: Yes (Death, Other)
  Sender: FDA-Public Use
  Company Number: CN-JNJFOC-20091206720

PATIENT
  Sex: Female
  Weight: 85 kg

DRUGS (3)
  1. SPORANOX [Suspect]
     Indication: DRUG USE FOR UNKNOWN INDICATION
     Route: 011
  2. TIENAM [Concomitant]
     Indication: BACTERIAL INFECTION
  3. VANCOMYCIN [Concomitant]
     Indication: BACTERIAL INFECTION

REACTIONS (2)
  - DEATH [None]
  - HEPATIC FUNCTION ABNORMAL [None]
